FAERS Safety Report 7800242-9 (Version None)
Quarter: 2011Q4

REPORT INFORMATION
  Report Type: 
  Country: None (occurrence: None)
  Receive Date: 20111006
  Receipt Date: 20110830
  Transmission Date: 20120403
  Serious: Yes (Hospitalization)
  Sender: FDA-Public Use
  Company Number: BR-GLAXOSMITHKLINE-A0943371A

PATIENT
  Sex: Female
  Weight: 75 kg

DRUGS (2)
  1. PROMACTA [Suspect]
     Indication: IDIOPATHIC THROMBOCYTOPENIC PURPURA
     Dosage: 50MG IN THE MORNING
     Route: 048
     Dates: start: 20110629, end: 20110817
  2. PREDNISONE [Concomitant]

REACTIONS (6)
  - ARTHRALGIA [None]
  - THROMBOCYTOPENIA [None]
  - PLATELET MORPHOLOGY ABNORMAL [None]
  - OEDEMA [None]
  - IMMOBILE [None]
  - METRORRHAGIA [None]
